FAERS Safety Report 10992702 (Version 2)
Quarter: 2015Q2

REPORT INFORMATION
  Report Type: Spontaneous
  Country: US (occurrence: US)
  Receive Date: 20150406
  Receipt Date: 20150410
  Transmission Date: 20150821
  Serious: No
  Sender: FDA-Public Use
  Company Number: US-TEVA-550051USA

PATIENT
  Age: 44 Year
  Sex: Male

DRUGS (1)
  1. COPAXONE [Suspect]
     Active Substance: GLATIRAMER ACETATE
     Indication: MULTIPLE SCLEROSIS
     Route: 065
     Dates: start: 20130418

REACTIONS (5)
  - Injection site bruising [Unknown]
  - Injection site reaction [Unknown]
  - Skin haemorrhage [Unknown]
  - Impaired healing [Unknown]
  - Scar [Unknown]

NARRATIVE: CASE EVENT DATE: 201411
